FAERS Safety Report 5071062-6 (Version None)
Quarter: 2006Q3

REPORT INFORMATION
  Report Type: 
  Country: None (occurrence: None)
  Receive Date: 20060804
  Receipt Date: 20060119
  Transmission Date: 20061208
  Serious: Yes (Other)
  Sender: FDA-Public Use
  Company Number: US-GLAXOSMITHKLINE-A0590039A

PATIENT
  Age: 60 Year
  Sex: Female

DRUGS (2)
  1. NICORETTE (MINT) [Suspect]
     Indication: DRUG WITHDRAWAL MAINTENANCE THERAPY
     Dosage: 4MG SEE DOSAGE TEXT
     Dates: start: 20021001
  2. COMMIT [Suspect]
     Indication: DRUG WITHDRAWAL MAINTENANCE THERAPY
     Dosage: 4MG SEE DOSAGE TEXT
     Dates: start: 20050101

REACTIONS (4)
  - ANOREXIA [None]
  - DRUG ABUSER [None]
  - FLATULENCE [None]
  - NAUSEA [None]
